FAERS Safety Report 4293764-1 (Version None)
Quarter: 2004Q1

REPORT INFORMATION
  Report Type: 
  Country: None (occurrence: None)
  Receive Date: 20040210
  Receipt Date: 20040202
  Transmission Date: 20041129
  Serious: Yes (Other)
  Sender: FDA-Public Use
  Company Number: US-JNJFOC-20040100272

PATIENT
  Age: 56 Year
  Sex: Male
  Weight: 131.5431 kg

DRUGS (4)
  1. NATRECOR [Suspect]
     Indication: CARDIAC FAILURE CONGESTIVE
     Dosage: SEE IMAGE INTRAVENOUS BOLUS
     Route: 040
     Dates: start: 20030827
  2. MAGNESIUM (MAGNESIUM) [Suspect]
     Indication: HYPOMAGNESAEMIA
     Dosage: MAGNESIUM SULFATE 2 GM/100CC IV INFUSED OVER ONE HOUR
     Route: 042
  3. COUMADIN [Concomitant]
  4. INSULIN 70/30 (HUMAN MIXTARD) [Concomitant]

REACTIONS (6)
  - BLOOD GLUCOSE INCREASED [None]
  - FEELING ABNORMAL [None]
  - HYPOTENSION [None]
  - OEDEMA PERIPHERAL [None]
  - OXYGEN SATURATION DECREASED [None]
  - RESPIRATORY RATE INCREASED [None]
